FAERS Safety Report 4847385-X (Version None)
Quarter: 2005Q4

REPORT INFORMATION
  Report Type: 
  Country: None (occurrence: None)
  Receive Date: 20051207
  Receipt Date: 20051129
  Transmission Date: 20060501
  Serious: Yes (Hospitalization)
  Sender: FDA-Public Use
  Company Number: US-JNJFOC-20051106430

PATIENT
  Sex: Female
  Weight: 93.44 kg

DRUGS (6)
  1. INFLIXIMAB [Suspect]
     Route: 042
  2. INFLIXIMAB [Suspect]
     Route: 042
  3. INFLIXIMAB [Suspect]
     Route: 042
  4. INFLIXIMAB [Suspect]
     Indication: CROHN'S DISEASE
     Route: 042
  5. MESALAMINE [Suspect]
     Indication: CROHN'S DISEASE
  6. ANTIBIOTICS [Suspect]
     Indication: CROHN'S DISEASE

REACTIONS (1)
  - JOINT EFFUSION [None]
